FAERS Safety Report 8275611 (Version 2)
Quarter: 2013Q3

REPORT INFORMATION
  Report Type: Spontaneous
  Country: US (occurrence: US)
  Receive Date: 20111205
  Receipt Date: 20130827
  Transmission Date: 20140515
  Serious: Yes (Other)
  Sender: FDA-Public Use
  Company Number: US-ROCHE-1015563

PATIENT
  Age: 81 Year
  Sex: Female

DRUGS (3)
  1. BONIVA [Suspect]
     Indication: OSTEOPOROSIS
     Route: 048
     Dates: start: 20060807, end: 20090728
  2. FOSAMAX [Suspect]
     Indication: OSTEOPOROSIS
     Route: 048
     Dates: start: 19970428, end: 19971222
  3. ACTONEL [Suspect]
     Indication: OSTEOPOROSIS
     Route: 048
     Dates: start: 200605, end: 200607

REACTIONS (3)
  - Osteonecrosis of jaw [Unknown]
  - Anxiety [Unknown]
  - Depression [Unknown]
